FAERS Safety Report 6233197-1 (Version None)
Quarter: 2009Q2

REPORT INFORMATION
  Report Type: 
  Country: None (occurrence: None)
  Receive Date: 20090612
  Receipt Date: 20090601
  Transmission Date: 20091009
  Serious: Yes (Hospitalization)
  Sender: FDA-Public Use
  Company Number: 238736J08USA

PATIENT
  Age: 39 Year
  Sex: Female
  Weight: 57 kg

DRUGS (15)
  1. REBIF [Suspect]
     Indication: MULTIPLE SCLEROSIS
     Dosage: 44 MCG, 3 IN 1 WEEKS, SUBCUTANEOUS
     Route: 058
     Dates: start: 20050101
  2. PEPCID [Concomitant]
  3. FENTANYL [Concomitant]
  4. MULTIVITAMIN [Concomitant]
  5. MIRALAX [Concomitant]
  6. METAMUCIL (PLANTAGO OVATA) [Concomitant]
  7. SENNA (SENNA ALEXANDRINA) [Concomitant]
  8. BACLOFEN [Concomitant]
  9. COLACE (DUCUSATE SODIUM) [Concomitant]
  10. HEPARIN [Concomitant]
  11. ZOFTRAN (ONDANSETRON HYDROCHLORIDE) [Concomitant]
  12. DETROL LA [Concomitant]
  13. TRAZODONE HCL [Concomitant]
  14. LYRICA [Concomitant]
  15. ALBUTEROL [Concomitant]

REACTIONS (15)
  - ABDOMINAL PAIN LOWER [None]
  - BRONCHITIS [None]
  - CONDITION AGGRAVATED [None]
  - CONSTIPATION [None]
  - DIARRHOEA [None]
  - DYSPEPSIA [None]
  - FOOD INTOLERANCE [None]
  - GASTROINTESTINAL DISORDER [None]
  - HEADACHE [None]
  - HEPATIC STEATOSIS [None]
  - LEUKOCYTOSIS [None]
  - MULTIPLE SCLEROSIS [None]
  - MUSCULOSKELETAL STIFFNESS [None]
  - POOR QUALITY SLEEP [None]
  - PYREXIA [None]
